FAERS Safety Report 15738553 (Version 1)
Quarter: 2018Q4

REPORT INFORMATION
  Report Type: Spontaneous
  Country: US (occurrence: US)
  Receive Date: 20181219
  Receipt Date: 20181219
  Transmission Date: 20190205
  Serious: No
  Sender: FDA-Public Use
  Company Number: US-PFIZER INC-2018512599

PATIENT

DRUGS (1)
  1. ESTRING [Suspect]
     Active Substance: ESTRADIOL
     Dosage: UNK

REACTIONS (5)
  - Dry eye [Unknown]
  - Poor quality sleep [Unknown]
  - Hot flush [Unknown]
  - Drug effect incomplete [Unknown]
  - Incontinence [Unknown]
